FAERS Safety Report 17523840 (Version 1)
Quarter: 2020Q1

REPORT INFORMATION
  Report Type: Spontaneous
  Country: US (occurrence: US)
  Receive Date: 20200311
  Receipt Date: 20200311
  Transmission Date: 20200409
  Serious: Yes (Hospitalization)
  Sender: FDA-Public Use
  Company Number: US-TEVA-2020-US-1196098

PATIENT
  Sex: Female

DRUGS (22)
  1. SYNRIBO [Suspect]
     Active Substance: OMACETAXINE MEPESUCCINATE
     Indication: CHRONIC MYELOID LEUKAEMIA
     Dosage: DOSAGE: 2.1MG/0.60ML, BID FOR 5 DAYS OF 28 DAY CYCLE
     Route: 065
     Dates: start: 20190717
  2. HYDREA [Concomitant]
     Active Substance: HYDROXYUREA
  3. SENOKOT [Concomitant]
     Active Substance: SENNOSIDES
  4. SYNRIBO [Concomitant]
     Active Substance: OMACETAXINE MEPESUCCINATE
  5. MORPHINE SULFATE. [Concomitant]
     Active Substance: MORPHINE SULFATE
  6. METOCLOPRAMIDE HYDROCHLOR [Concomitant]
  7. COMPAZINE [Concomitant]
     Active Substance: PROCHLORPERAZINE MALEATE
  8. LORAZEPAM. [Concomitant]
     Active Substance: LORAZEPAM
  9. OLANZAPINE. [Concomitant]
     Active Substance: OLANZAPINE
  10. KEPPRA [Concomitant]
     Active Substance: LEVETIRACETAM
  11. ZOFRAN [Concomitant]
     Active Substance: ONDANSETRON HYDROCHLORIDE
  12. SYNRIBO [Suspect]
     Active Substance: OMACETAXINE MEPESUCCINATE
     Indication: TYROSINE KINASE MUTATION
  13. LEVAQUIN [Concomitant]
     Active Substance: LEVOFLOXACIN
  14. COLACE [Concomitant]
     Active Substance: DOCUSATE SODIUM
  15. PROTONIX [Concomitant]
     Active Substance: PANTOPRAZOLE SODIUM
  16. PERCOCET [Concomitant]
     Active Substance: ACETAMINOPHEN\OXYCODONE HYDROCHLORIDE
  17. DURAGESIC [Concomitant]
     Active Substance: FENTANYL
  18. SYNRIBO [Suspect]
     Active Substance: OMACETAXINE MEPESUCCINATE
     Indication: REMISSION NOT ACHIEVED
  19. ATIVAN [Concomitant]
     Active Substance: LORAZEPAM
  20. OXYCODONE HYDROCHLORIDE. [Concomitant]
     Active Substance: OXYCODONE HYDROCHLORIDE
     Dates: start: 20190717
  21. OMEPRAZOLE. [Concomitant]
     Active Substance: OMEPRAZOLE
  22. TASIGNA [Concomitant]
     Active Substance: NILOTINIB

REACTIONS (1)
  - Hospitalisation [Unknown]
